FAERS Safety Report 6404508-9 (Version None)
Quarter: 2009Q4

REPORT INFORMATION
  Report Type: 
  Country: None (occurrence: None)
  Receive Date: 20091016
  Receipt Date: 20091013
  Transmission Date: 20100525
  Serious: Yes (Death, Life-Threatening, Hospitalization, Disabling, Other)
  Sender: FDA-Public Use
  Company Number: SI-BRISTOL-MYERS SQUIBB COMPANY-14417224

PATIENT
  Age: 79 Year
  Sex: Female
  Weight: 94 kg

DRUGS (8)
  1. MEGACE [Suspect]
     Indication: ENDOMETRIAL CANCER
     Route: 048
     Dates: start: 20081107
  2. MEGACE [Suspect]
  3. CONCOR [Concomitant]
  4. LEXAURIN [Concomitant]
  5. RAWEL [Concomitant]
  6. GLUCOTROL [Concomitant]
  7. ZALDIAR [Concomitant]
  8. SANVAL [Concomitant]

REACTIONS (9)
  - CHEST PAIN [None]
  - DYSPNOEA [None]
  - NAUSEA [None]
  - OEDEMA PERIPHERAL [None]
  - PAIN IN EXTREMITY [None]
  - RENAL FAILURE [None]
  - THROMBOPHLEBITIS [None]
  - THROMBOSIS [None]
  - VOMITING [None]
